FAERS Safety Report 6574339-8 (Version None)
Quarter: 2010Q1

REPORT INFORMATION
  Report Type: 
  Country: None (occurrence: None)
  Receive Date: 20100201
  Receipt Date: 20100121
  Transmission Date: 20100710
  Serious: Yes (Life-Threatening, Hospitalization)
  Sender: FDA-Public Use
  Company Number: 2010AL000568

PATIENT
  Age: 67 Year
  Sex: Male

DRUGS (12)
  1. ACYCLOVIR [Suspect]
     Indication: PROPHYLAXIS
     Dosage: 400 MG; BID; PO
     Route: 048
     Dates: start: 20080630, end: 20080709
  2. SULFATRIM AND SULFATRIM PEDIATRIC SUSPENSION (SULFAMETHOXAZOLE/TRIMEHO [Suspect]
     Indication: PROPHYLAXIS
     Dosage: 960 MG; TIW
     Dates: start: 20080702, end: 20080704
  3. LITAK [Concomitant]
  4. ITRACONAZOLE [Concomitant]
  5. BENDROFLUMETHIAZIDE [Concomitant]
  6. SIMVASTATIN [Concomitant]
  7. CIPROFLOXACIN [Concomitant]
  8. ALLOPURINOL [Concomitant]
  9. ZOPICLONE [Concomitant]
  10. AMPHOTERICIN B [Concomitant]
  11. CLARITHROMYCIN [Concomitant]
  12. CEFTAZIDIME [Concomitant]

REACTIONS (15)
  - ACUTE MYOCARDIAL INFARCTION [None]
  - BRADYARRHYTHMIA [None]
  - CONDITION AGGRAVATED [None]
  - DISSEMINATED INTRAVASCULAR COAGULATION [None]
  - HAEMODIALYSIS [None]
  - HYPERBILIRUBINAEMIA [None]
  - HYPERSENSITIVITY [None]
  - LEUKOCYTOCLASTIC VASCULITIS [None]
  - NEUTROPENIC SEPSIS [None]
  - RENAL IMPAIRMENT [None]
  - SEPTIC SHOCK [None]
  - STAPHYLOCOCCAL INFECTION [None]
  - THROMBOCYTOPENIA [None]
  - VASCULAR PURPURA [None]
  - WEIGHT DECREASED [None]
